FAERS Safety Report 8942000 (Version 2)
Quarter: 2013Q1

REPORT INFORMATION
  Report Type: Spontaneous
  Country: US (occurrence: US)
  Receive Date: 20121203
  Receipt Date: 20130108
  Transmission Date: 20140127
  Serious: Yes (Congenital Anomaly, Other)
  Sender: FDA-Public Use
  Company Number: US-PFIZER INC-2012300685

PATIENT
  Sex: Male

DRUGS (4)
  1. ZOLOFT [Suspect]
     Dosage: UNK
     Route: 064
     Dates: start: 200002
  2. ZOLOFT [Suspect]
     Dosage: UNK
     Route: 064
     Dates: start: 200312, end: 200503
  3. PRENATAL VITAMINS [Concomitant]
     Dosage: UNK
     Route: 064
  4. NOVOLOG [Concomitant]
     Dosage: UNK
     Route: 064

REACTIONS (8)
  - Maternal exposure timing unspecified [Unknown]
  - Double outlet right ventricle [Unknown]
  - Tracheo-oesophageal fistula [Unknown]
  - Heart disease congenital [Unknown]
  - Laryngeal cleft [Unknown]
  - Congenital anaemia [Unknown]
  - Autism [Unknown]
  - Premature baby [Unknown]
